FAERS Safety Report 5086642-1 (Version None)
Quarter: 2006Q3

REPORT INFORMATION
  Report Type: 
  Country: None (occurrence: None)
  Receive Date: 20060823
  Receipt Date: 20060628
  Transmission Date: 20061208
  Serious: Yes (Other)
  Sender: FDA-Public Use
  Company Number: JP-BRISTOL-MYERS SQUIBB COMPANY-13450812

PATIENT
  Age: 70 Year
  Sex: Female

DRUGS (12)
  1. SINEMET [Suspect]
     Indication: PARKINSONISM
     Route: 048
     Dates: end: 20051101
  2. SINEMET [Suspect]
     Route: 048
     Dates: start: 20051122, end: 20051123
  3. SINEMET [Suspect]
     Route: 048
     Dates: start: 20051124, end: 20051201
  4. PRAMIPEXOLE HCL [Concomitant]
     Dates: start: 20051114, end: 20051115
  5. NITRAZEPAM [Concomitant]
     Dates: start: 20051115, end: 20051219
  6. RISPERDAL [Concomitant]
     Dates: start: 20051109, end: 20051114
  7. RISPERIDONE [Concomitant]
     Dates: start: 20051115, end: 20051121
  8. VERAPAMIL HCL [Concomitant]
     Dates: start: 20051118, end: 20051219
  9. ZOPICLONE [Concomitant]
     Dates: start: 20051115, end: 20051219
  10. DIOVAN [Concomitant]
     Dates: start: 20051108, end: 20051127
  11. AMOXAPINE [Concomitant]
     Dates: start: 20051111, end: 20051115
  12. MILNACIPRAN [Concomitant]
     Dates: start: 20051116, end: 20051118

REACTIONS (1)
  - DELIRIUM [None]
